FAERS Safety Report 4989651-3 (Version None)
Quarter: 2006Q2

REPORT INFORMATION
  Report Type: 
  Country: None (occurrence: None)
  Receive Date: 20060426
  Receipt Date: 20060413
  Transmission Date: 20061013
  Serious: Yes (Other)
  Sender: FDA-Public Use
  Company Number: 2006-141251-NL

PATIENT
  Age: 19 Year
  Sex: Female
  Weight: 93 kg

DRUGS (2)
  1. NUVARING [Suspect]
     Indication: CONTRACEPTION
     Dosage: VAGINAL, 21 DAY IN/7 DAYS OUT
     Route: 067
     Dates: start: 20040101
  2. VITAMINS [Concomitant]

REACTIONS (3)
  - CHOLELITHIASIS [None]
  - MEDICAL DEVICE COMPLICATION [None]
  - METRORRHAGIA [None]
